FAERS Safety Report 17190786 (Version 2)
Quarter: 2019Q4

REPORT INFORMATION
  Report Type: Spontaneous
  Country: CA (occurrence: CA)
  Receive Date: 20191223
  Receipt Date: 20191224
  Transmission Date: 20200122
  Serious: No
  Sender: FDA-Public Use
  Company Number: CA-PFIZER INC-2019549334

PATIENT
  Sex: Female

DRUGS (4)
  1. DOCETAXEL. [Suspect]
     Active Substance: DOCETAXEL
     Indication: SYNOVIAL SARCOMA
     Dosage: UNK
     Route: 065
  2. GEMCITABINE HYDROCHLORIDE. [Suspect]
     Active Substance: GEMCITABINE HYDROCHLORIDE
     Indication: SYNOVIAL SARCOMA
     Dosage: UNK
     Route: 065
  3. IFOSFAMIDE. [Suspect]
     Active Substance: IFOSFAMIDE
     Indication: SYNOVIAL SARCOMA
     Dosage: UNK
     Route: 065
  4. DOXORUBICIN HCL [Suspect]
     Active Substance: DOXORUBICIN HYDROCHLORIDE
     Indication: SYNOVIAL SARCOMA
     Dosage: UNK
     Route: 065

REACTIONS (3)
  - Neoplasm progression [Unknown]
  - Product use in unapproved indication [Unknown]
  - Off label use [Unknown]
